FAERS Safety Report 10428759 (Version 2)
Quarter: 2014Q3

REPORT INFORMATION
  Report Type: Report from Study
  Country: JP (occurrence: JP)
  Receive Date: 20140903
  Receipt Date: 20140903
  Transmission Date: 20150326
  Serious: Yes (Other)
  Sender: FDA-Public Use
  Company Number: JP-UCBSA-117062

PATIENT
  Age: 43 Year
  Sex: Female
  Weight: 61 kg

DRUGS (7)
  1. RHEUMATREX [Concomitant]
     Active Substance: METHOTREXATE SODIUM
     Route: 048
  2. FOLIAMIN [Concomitant]
     Active Substance: FOLIC ACID
     Route: 048
  3. CELECOX [Concomitant]
     Active Substance: CELECOXIB
     Dosage: TOTAL DAILY DOSE: 400 MG
     Route: 048
  4. LANSOPRAZOLE-OD [Concomitant]
     Active Substance: LANSOPRAZOLE
     Dosage: TOTAL DAILY DOSE: 15 MG
     Route: 048
  5. CERTOLIZUMAB PEGOL RA [Suspect]
     Active Substance: CERTOLIZUMAB PEGOL
     Indication: RHEUMATOID ARTHRITIS
     Dosage: 200 MG SYRINGE
     Route: 058
     Dates: start: 20131011, end: 20131011
  6. SEFTAC [Concomitant]
     Active Substance: TEPRENONE
     Dosage: TOTAL DIALY DOSE: 50 MG
     Route: 048
  7. CERTOLIZUMAB PEGOL RA [Suspect]
     Active Substance: CERTOLIZUMAB PEGOL
     Dosage: 200 MG SYRINGE
     Route: 058
     Dates: start: 20130909, end: 20130909

REACTIONS (2)
  - Laryngeal haemorrhage [Recovered/Resolved]
  - Laryngeal oedema [Recovered/Resolved]

NARRATIVE: CASE EVENT DATE: 20130930
